FAERS Safety Report 8340320-1 (Version None)
Quarter: 2012Q2

REPORT INFORMATION
  Report Type: 
  Country: None (occurrence: None)
  Receive Date: 20120507
  Receipt Date: 20120507
  Transmission Date: 20120825
  Serious: No
  Sender: FDA-Public Use
  Company Number: None

PATIENT
  Age: 56 Year
  Sex: Female

DRUGS (1)
  1. BENLYSTA [Suspect]
     Indication: SYSTEMIC LUPUS ERYTHEMATOSUS

REACTIONS (6)
  - FATIGUE [None]
  - MOBILITY DECREASED [None]
  - NAUSEA [None]
  - WEIGHT DECREASED [None]
  - INFLUENZA [None]
  - DIARRHOEA [None]
